FAERS Safety Report 18092378 (Version 1)
Quarter: 2020Q3

REPORT INFORMATION
  Report Type: Spontaneous
  Country: US (occurrence: US)
  Receive Date: 20200729
  Receipt Date: 20200729
  Transmission Date: 20201103
  Serious: Yes (Hospitalization, Other)
  Sender: FDA-Public Use
  Company Number: None

PATIENT
  Age: 27 Year
  Sex: Female
  Weight: 70.2 kg

DRUGS (2)
  1. BLUMEN CLEAR ADVANCED HAND SANITIZER [Suspect]
     Active Substance: ALCOHOL
     Indication: INFECTION PROPHYLAXIS
     Route: 061
     Dates: start: 20200406, end: 20200702
  2. JUNEL FE BIRTH CONTROL [Concomitant]

REACTIONS (11)
  - Vision blurred [None]
  - Dizziness [None]
  - Weight decreased [None]
  - Diarrhoea [None]
  - Decreased appetite [None]
  - Nausea [None]
  - Vomiting [None]
  - Abdominal discomfort [None]
  - Dyspnoea [None]
  - Asthenia [None]
  - Palpitations [None]

NARRATIVE: CASE EVENT DATE: 20200418
